FAERS Safety Report 16211575 (Version 1)
Quarter: 2019Q2

REPORT INFORMATION
  Report Type: Spontaneous
  Country: US (occurrence: US)
  Receive Date: 20190417
  Receipt Date: 20190417
  Transmission Date: 20190711
  Serious: Yes (Hospitalization)
  Sender: FDA-Public Use
  Company Number: None

PATIENT
  Age: 64 Year
  Sex: Male

DRUGS (6)
  1. METOPROLOL SUCC [Concomitant]
     Active Substance: METOPROLOL SUCCINATE
  2. CEFUROXIME. [Concomitant]
     Active Substance: CEFUROXIME
  3. WARFARIN [Concomitant]
     Active Substance: WARFARIN
  4. BUMETANIDE. [Concomitant]
     Active Substance: BUMETANIDE
  5. LEVOTHYROXINE. [Concomitant]
     Active Substance: LEVOTHYROXINE
  6. SILDENAFIL. [Suspect]
     Active Substance: SILDENAFIL
     Indication: PULMONARY HYPERTENSION
     Route: 048
     Dates: start: 20180112

REACTIONS (3)
  - Transplant evaluation [None]
  - Hospitalisation [None]
  - Therapy cessation [None]

NARRATIVE: CASE EVENT DATE: 20190401
